FAERS Safety Report 23596726 (Version 1)
Quarter: 2024Q1

REPORT INFORMATION
  Report Type: Spontaneous
  Country: CN (occurrence: CN)
  Receive Date: 20240305
  Receipt Date: 20240305
  Transmission Date: 20240410
  Serious: Yes (Hospitalization)
  Sender: FDA-Public Use
  Company Number: CN-STRIDES ARCOLAB LIMITED-2024SP002521

PATIENT
  Sex: Female

DRUGS (8)
  1. CYCLOSPORINE [Suspect]
     Active Substance: CYCLOSPORINE
     Indication: Pustular psoriasis
     Dosage: 150 MILLIGRAM PER DAY
     Route: 048
  2. MINOCYCLINE [Suspect]
     Active Substance: MINOCYCLINE HYDROCHLORIDE
     Indication: Pustular psoriasis
     Dosage: UNK
     Route: 065
  3. ADALIMUMAB [Suspect]
     Active Substance: ADALIMUMAB\ISOPROPYL ALCOHOL
     Indication: Pustular psoriasis
     Dosage: 80 MILLIGRAM
     Route: 065
  4. ADALIMUMAB [Suspect]
     Active Substance: ADALIMUMAB\ISOPROPYL ALCOHOL
     Dosage: UNK (RESTARTED)
     Route: 065
  5. THIAMPHENICOL [Concomitant]
     Active Substance: THIAMPHENICOL
     Indication: Pustular psoriasis
     Dosage: UNK
     Route: 065
  6. Compound glycyrrhizin [Concomitant]
     Indication: Pustular psoriasis
     Dosage: UNK
     Route: 065
  7. HALOMETASONE [Concomitant]
     Active Substance: HALOMETASONE
     Indication: Pustular psoriasis
     Dosage: UNK
     Route: 065
  8. TAZAROTENE [Concomitant]
     Active Substance: TAZAROTENE
     Indication: Pustular psoriasis
     Dosage: UNK
     Route: 065

REACTIONS (4)
  - Intentional product misuse [Unknown]
  - Treatment noncompliance [Unknown]
  - Therapy non-responder [Unknown]
  - Off label use [Unknown]
